FAERS Safety Report 16020906 (Version 2)
Quarter: 2019Q2

REPORT INFORMATION
  Report Type: Spontaneous
  Country: US (occurrence: US)
  Receive Date: 20190301
  Receipt Date: 20190415
  Transmission Date: 20190711
  Serious: No
  Sender: FDA-Public Use
  Company Number: US-PFIZER INC-2018156187

PATIENT
  Age: 17 Year
  Sex: Female
  Weight: 39 kg

DRUGS (7)
  1. LEVOTHYROXINE. [Concomitant]
     Active Substance: LEVOTHYROXINE
     Indication: THYROID DISORDER
     Dosage: 75 MG, 1X/DAY (EVERYDAY 75 MG MONDAY/THURSDAY)
  2. ESTRADIOL. [Concomitant]
     Active Substance: ESTRADIOL
     Dosage: 0.025 MG, WEEKLY
  3. GENOTROPIN [Suspect]
     Active Substance: SOMATROPIN
     Indication: THYROID DISORDER
  4. GENOTROPIN [Suspect]
     Active Substance: SOMATROPIN
     Indication: TURNER^S SYNDROME
     Dosage: 2.2 MG, 1X/DAY
     Dates: start: 201803, end: 20190121
  5. LEVOTHYROXINE. [Concomitant]
     Active Substance: LEVOTHYROXINE
     Dosage: 88 MG, UNK (88 MG FRIDAY/SUNDAY)
  6. ASPIRIN 81 [Concomitant]
     Active Substance: ASPIRIN
     Indication: COAGULOPATHY
     Dosage: 81 MG, DAILY
  7. GENOTROPIN [Suspect]
     Active Substance: SOMATROPIN
     Indication: GROWTH HORMONE DEFICIENCY
     Dosage: 1.6 MG, 1X/DAY
     Dates: start: 20180323

REACTIONS (3)
  - Product dose omission [Unknown]
  - Blood triglycerides increased [Unknown]
  - Device issue [Unknown]

NARRATIVE: CASE EVENT DATE: 20190117
